FAERS Safety Report 21004173 (Version 1)
Quarter: 2022Q2

REPORT INFORMATION
  Report Type: Spontaneous
  Country: US (occurrence: US)
  Receive Date: 20220624
  Receipt Date: 20220624
  Transmission Date: 20220721
  Serious: No
  Sender: FDA-Public Use
  Company Number: US-AVEO ONCOLOGY-2022-AVEO-US000138

PATIENT

DRUGS (4)
  1. FOTIVDA [Suspect]
     Active Substance: TIVOZANIB HYDROCHLORIDE
     Indication: Renal cell carcinoma
     Dosage: 1.34 MG, DAILY FOR 21 DAYS, THEREAFTER 7 DAYS OFF
     Route: 048
     Dates: start: 20220411
  2. LOSARTAN [Concomitant]
     Active Substance: LOSARTAN
  3. LEVOTHYROXINE [Concomitant]
     Active Substance: LEVOTHYROXINE
  4. HYDROCHLOROTHIAZIDE [Concomitant]
     Active Substance: HYDROCHLOROTHIAZIDE

REACTIONS (6)
  - Fatigue [Unknown]
  - Hypertension [Unknown]
  - Diarrhoea [Unknown]
  - Taste disorder [Unknown]
  - Paraesthesia [Unknown]
  - Tongue discomfort [Unknown]
